FAERS Safety Report 17358700 (Version 2)
Quarter: 2020Q1

REPORT INFORMATION
  Report Type: Spontaneous
  Country: US (occurrence: US)
  Receive Date: 20200201
  Receipt Date: 20200205
  Transmission Date: 20200409
  Serious: No
  Sender: FDA-Public Use
  Company Number: US-TEVA-2020-US-1176654

PATIENT
  Age: 58 Year
  Sex: Female

DRUGS (1)
  1. TEVA BUTABITAL, ASPIRIN AND CAFFEINE [Suspect]
     Active Substance: ASPIRIN\BUTALBITAL\CAFFEINE
     Indication: MIGRAINE
     Dosage: 50 MG/325 MG/40 MG
     Route: 065

REACTIONS (1)
  - Drug ineffective [Unknown]
